FAERS Safety Report 4716740-0 (Version None)
Quarter: 2005Q3

REPORT INFORMATION
  Report Type: 
  Country: None (occurrence: None)
  Receive Date: 20050714
  Receipt Date: 20050708
  Transmission Date: 20060218
  Serious: Yes (Hospitalization, Other)
  Sender: FDA-Public Use
  Company Number: 200510806BWH

PATIENT
  Age: 68 Year
  Sex: Female

DRUGS (19)
  1. AVELOX [Suspect]
     Indication: BRONCHITIS
     Dosage: 400 MG TOTAL DAILY ORAL
     Route: 048
     Dates: start: 20050219
  2. AVELOX [Suspect]
     Indication: PNEUMONIA
     Dosage: 400 MG TOTAL DAILY ORAL
     Route: 048
     Dates: start: 20050219
  3. AVELOX [Suspect]
     Indication: BRONCHITIS
     Dosage: 400 MG TOTAL DAILY ORAL
     Route: 048
     Dates: start: 20050413
  4. AVELOX [Suspect]
     Indication: PNEUMONIA
     Dosage: 400 MG TOTAL DAILY ORAL
     Route: 048
     Dates: start: 20050413
  5. SINGULAIR [Concomitant]
  6. BUSPAR [Concomitant]
  7. ACIPHEX [Concomitant]
  8. ZYRTEC [Concomitant]
  9. BEXTRA [Concomitant]
  10. FOSAMAX [Concomitant]
  11. ZONEGRAN [Concomitant]
  12. MIRAPEX [Concomitant]
  13. BACLOFEN [Concomitant]
  14. VITAMIN E [Concomitant]
  15. VITAMIN B COMPLEX WITH C [Concomitant]
  16. CARDIZEM CD [Concomitant]
  17. LASIX [Concomitant]
  18. DIGOXIN [Concomitant]
  19. CYMBALTA [Concomitant]

REACTIONS (7)
  - BRONCHITIS [None]
  - CONDITION AGGRAVATED [None]
  - DRUG HYPERSENSITIVITY [None]
  - EMPHYSEMA [None]
  - INCOHERENT [None]
  - LOSS OF CONSCIOUSNESS [None]
  - TACHYCARDIA [None]
